FAERS Safety Report 4527831-1 (Version None)
Quarter: 2004Q4

REPORT INFORMATION
  Report Type: 
  Country: None (occurrence: None)
  Receive Date: 20041123
  Receipt Date: 20040113
  Transmission Date: 20050328
  Serious: Yes (Hospitalization)
  Sender: FDA-Public Use
  Company Number: ATO-04-0042(0)

PATIENT
  Age: 65 Year
  Sex: Male
  Weight: 86.637 kg

DRUGS (4)
  1. TRISENOX [Suspect]
     Indication: MULTIPLE MYELOMA
     Dosage: 21.75 MG (0.25 MG/KG ) IVI
     Route: 042
     Dates: start: 20030908, end: 20031226
  2. THALIDOMIDE [Suspect]
     Indication: MULTIPLE MYELOMA
     Dosage: 150 MG (100 MG/KG) ORAL
     Route: 048
     Dates: start: 20030908, end: 20031226
  3. VITAMIN C [Concomitant]
  4. ARANESP [Concomitant]

REACTIONS (2)
  - ABDOMINAL PAIN [None]
  - PYREXIA [None]
